FAERS Safety Report 7738602-7 (Version None)
Quarter: 2011Q3

REPORT INFORMATION
  Report Type: 
  Country: None (occurrence: None)
  Receive Date: 20110908
  Receipt Date: 20110829
  Transmission Date: 20111222
  Serious: Yes (Other)
  Sender: FDA-Public Use
  Company Number: US-US-EMD SERONO, INC.-7077120

PATIENT
  Sex: Female

DRUGS (2)
  1. REBIF [Suspect]
     Indication: PRODUCT USED FOR UNKNOWN INDICATION
     Route: 058
     Dates: start: 20110722
  2. IBUPROFEN [Concomitant]

REACTIONS (5)
  - INSOMNIA [None]
  - ARTHRALGIA [None]
  - MALAISE [None]
  - GAIT DISTURBANCE [None]
  - BLOOD GLUCOSE INCREASED [None]
